FAERS Safety Report 16364694 (Version 1)
Quarter: 2019Q2

REPORT INFORMATION
  Report Type: Spontaneous
  Country: US (occurrence: US)
  Receive Date: 20190529
  Receipt Date: 20190529
  Transmission Date: 20190711
  Serious: No
  Sender: FDA-Public Use
  Company Number: US-GLAXOSMITHKLINE-US2019093804

PATIENT
  Age: 61 Year
  Sex: Female

DRUGS (1)
  1. FLONASE SENSIMIST ALLERGY RELIEF [Suspect]
     Active Substance: FLUTICASONE FUROATE
     Indication: ALLERGY TO ANIMAL
     Dosage: UNK
     Dates: start: 20190312, end: 20190415

REACTIONS (3)
  - Drug ineffective for unapproved indication [Unknown]
  - Product use in unapproved indication [Unknown]
  - Sinus headache [Recovered/Resolved]

NARRATIVE: CASE EVENT DATE: 20190410
